FAERS Safety Report 8969041 (Version 1)
Quarter: 2012Q4

REPORT INFORMATION
  Report Type: 
  Country: US (occurrence: US)
  Receive Date: 20121218
  Receipt Date: 20121218
  Transmission Date: 20130627
  Serious: No
  Sender: FDA-Public Use
  Company Number: US-BRISTOL-MYERS SQUIBB COMPANY-16696593

PATIENT
  Age: 15 Year
  Sex: Male
  Weight: 81.63 kg

DRUGS (2)
  1. ABILIFY [Suspect]
     Indication: DEPRESSION
     Dosage: refilled on 14Jun2012 or 15Jun2012
     Dates: start: 20120514, end: 201206
  2. ZOLOFT [Concomitant]
     Dates: start: 20120513

REACTIONS (6)
  - Drug dispensing error [Unknown]
  - Feeling abnormal [Unknown]
  - Fatigue [Unknown]
  - Hypersomnia [Unknown]
  - Increased appetite [Unknown]
  - Weight increased [Unknown]
